FAERS Safety Report 7364604-9 (Version None)
Quarter: 2011Q1

REPORT INFORMATION
  Report Type: 
  Country: None (occurrence: None)
  Receive Date: 20110315
  Receipt Date: 20110315
  Transmission Date: 20110831
  Serious: Yes (Hospitalization)
  Sender: FDA-Public Use
  Company Number: None

PATIENT
  Age: 74 Year
  Sex: Female
  Weight: 83.2 kg

DRUGS (4)
  1. CHLORPROMAZINE [Suspect]
     Indication: BIPOLAR DISORDER
     Dosage: 50 MG HS PO
     Route: 048
     Dates: start: 20110228, end: 20110308
  2. RISPERIDONE [Suspect]
     Indication: BIPOLAR DISORDER
     Dosage: 3 MG AT BEDTIME PO
     Route: 048
     Dates: start: 20110228, end: 20110310
  3. RISPERIDONE [Suspect]
     Indication: MANIA
     Dosage: 3 MG AT BEDTIME PO
     Route: 048
     Dates: start: 20110228, end: 20110310
  4. RISPERIDONE [Suspect]
     Indication: PSYCHOTIC DISORDER
     Dosage: 3 MG AT BEDTIME PO
     Route: 048
     Dates: start: 20110228, end: 20110310

REACTIONS (4)
  - DYSTONIA [None]
  - ANGER [None]
  - ANXIETY [None]
  - FEAR [None]
